FAERS Safety Report 6330673-8 (Version None)
Quarter: 2009Q3

REPORT INFORMATION
  Report Type: 
  Country: None (occurrence: None)
  Receive Date: 20090817
  Receipt Date: 20090430
  Transmission Date: 20100115
  Serious: No
  Sender: FDA-Public Use
  Company Number: 20096723

PATIENT
  Age: 4 Year
  Sex: Male

DRUGS (1)
  1. LIORESAL [Suspect]
     Indication: MUSCLE SPASTICITY
     Dosage: 100-120 MCG, DAILY, INTRATHECAL
     Route: 037

REACTIONS (2)
  - OVERDOSE [None]
  - THINKING ABNORMAL [None]
